FAERS Safety Report 9009844 (Version 1)
Quarter: 2013Q1

REPORT INFORMATION
  Report Type: Spontaneous
  Country: IT (occurrence: IT)
  Receive Date: 20130110
  Receipt Date: 20130110
  Transmission Date: 20140127
  Serious: Yes (Other)
  Sender: FDA-Public Use
  Company Number: IT-BAYER-2013-001609

PATIENT
  Age: 26 Year
  Sex: Female

DRUGS (3)
  1. ACETYLSALICYLIC ACID({=100 MG) [Suspect]
     Dosage: 100 MG DIE
  2. NIFEDIPINE [Suspect]
  3. METHYLDOPA [Suspect]

REACTIONS (3)
  - Premature delivery [None]
  - Exposure during pregnancy [None]
  - Contraindication to medical treatment [None]
